FAERS Safety Report 7411505-3 (Version None)
Quarter: 2011Q2

REPORT INFORMATION
  Report Type: 
  Country: None (occurrence: None)
  Receive Date: 20110413
  Receipt Date: 20110401
  Transmission Date: 20111010
  Serious: Yes (Hospitalization)
  Sender: FDA-Public Use
  Company Number: PHHY2011CA04175

PATIENT
  Sex: Male

DRUGS (1)
  1. GLEEVEC [Suspect]
     Indication: CHRONIC MYELOID LEUKAEMIA
     Dosage: 100 MG, UNK
     Route: 048
     Dates: start: 20110103

REACTIONS (5)
  - FALL [None]
  - HYPOTENSION [None]
  - THERAPEUTIC RESPONSE DECREASED [None]
  - HAEMOPTYSIS [None]
  - EPISTAXIS [None]
